FAERS Safety Report 25889641 (Version 1)
Quarter: 2025Q4

REPORT INFORMATION
  Report Type: Other
  Country: EU (occurrence: EU)
  Receive Date: 20251007
  Receipt Date: 20251007
  Transmission Date: 20260118
  Serious: Yes (Other)
  Sender: LUPIN
  Company Number: EU-EMB-M202407304-1

PATIENT
  Sex: Female
  Weight: 77 kg

DRUGS (5)
  1. PAROXETINE [Suspect]
     Active Substance: PAROXETINE
     Indication: Anxiety disorder
     Dosage: 20 MILLIGRAM, QD
     Dates: start: 202411, end: 202502
  2. QUETIAPINE [Suspect]
     Active Substance: QUETIAPINE
     Indication: Anxiety disorder
     Dosage: 100 MILLIGRAM, QD
     Dates: start: 202405, end: 202502
  3. FLUVOXAMINE [Suspect]
     Active Substance: FLUVOXAMINE
     Indication: Anxiety disorder
     Dosage: 150 MILLIGRAM, BID
     Dates: start: 202405, end: 202411
  4. VAXIGRIP [Suspect]
     Active Substance: INFLUENZA VIRUS VACCINE
     Indication: Immunisation
     Dosage: UNK
     Dates: start: 202409, end: 202409
  5. Covaxis [Concomitant]
     Indication: Immunisation
     Dosage: UNK
     Dates: start: 202412, end: 202412

REACTIONS (2)
  - Gestational diabetes [Recovered/Resolved]
  - Maternal exposure during pregnancy [Unknown]
